FAERS Safety Report 6030086-2 (Version None)
Quarter: 2009Q1

REPORT INFORMATION
  Report Type: 
  Country: None (occurrence: None)
  Receive Date: 20090106
  Receipt Date: 20090106
  Transmission Date: 20090719
  Serious: No
  Sender: FDA-Public Use
  Company Number: None

PATIENT
  Sex: Female

DRUGS (2)
  1. PROCTOSOL-HC 2.5% 2.5% [Suspect]
     Indication: HAEMORRHOIDS
  2. PROCTOSOL-HC 2.5% [Suspect]

REACTIONS (3)
  - APPLICATION SITE REACTION [None]
  - HAEMORRHAGE [None]
  - SKIN LACERATION [None]
